FAERS Safety Report 10678074 (Version 1)
Quarter: 2014Q4

REPORT INFORMATION
  Report Type: Other
  Country: DE (occurrence: DE)
  Receive Date: 20141229
  Receipt Date: 20141229
  Transmission Date: 20150529
  Serious: Yes (Other)
  Sender: FDA-Public Use
  Company Number: DE-LUPIN PHARMACEUTICALS INC.-E2B_00002867

PATIENT
  Age: 36 Year
  Sex: Female

DRUGS (5)
  1. QUETIAPIN [Concomitant]
     Active Substance: QUETIAPINE
     Indication: PRODUCT USED FOR UNKNOWN INDICATION
     Route: 048
     Dates: start: 201404, end: 20140614
  2. QUETIAPIN [Concomitant]
     Active Substance: QUETIAPINE
     Route: 048
     Dates: start: 20140615, end: 20140616
  3. ZIPRASIDON [Suspect]
     Active Substance: ZIPRASIDONE HYDROCHLORIDE
     Route: 048
     Dates: start: 20140616, end: 20140625
  4. QUETIAPIN [Concomitant]
     Active Substance: QUETIAPINE
     Route: 048
     Dates: start: 20140617, end: 20140624
  5. ZIPRASIDON [Suspect]
     Active Substance: ZIPRASIDONE HYDROCHLORIDE
     Indication: PRODUCT USED FOR UNKNOWN INDICATION
     Route: 048
     Dates: start: 20140612, end: 20140615

REACTIONS (1)
  - Dyskinesia [Recovered/Resolved]

NARRATIVE: CASE EVENT DATE: 20140616
